FAERS Safety Report 8412120 (Version 3)
Quarter: 2013Q2

REPORT INFORMATION
  Report Type: Spontaneous
  Country: US (occurrence: None)
  Receive Date: 20111227
  Receipt Date: 20120426
  Transmission Date: 20140414
  Serious: Yes (Other)
  Sender: FDA-Public Use
  Company Number: PHHY2011US32027

PATIENT
  Age: 59 Year
  Sex: Female

DRUGS (3)
  1. GILENYA [Suspect]
     Indication: MULTIPLE SCLEROSIS
     Dosage: 0.5 MG, QD, ORAL
     Route: 048
     Dates: start: 20110228
  2. GILENYA [Suspect]
     Indication: RELAPSING-REMITTING MULTIPLE SCLEROSIS
     Dosage: 0.5 MG, QD, ORAL
     Route: 048
     Dates: start: 20110228
  3. METFORMIN (METFORMIN) [Concomitant]

REACTIONS (8)
  - Lacrimation increased [None]
  - FATIGUE [None]
  - ASTHENIA [None]
  - Accidental overdose [None]
  - Abnormal sensation in eye [None]
  - Anxiety [None]
  - Sensory loss [None]
  - Hemiparesis [None]
